FAERS Safety Report 21268189 (Version 1)
Quarter: 2022Q3

REPORT INFORMATION
  Report Type: Spontaneous
  Country: AU (occurrence: AU)
  Receive Date: 20220830
  Receipt Date: 20220830
  Transmission Date: 20221026
  Serious: Yes (Other)
  Sender: FDA-Public Use
  Company Number: AU-drreddys-SPO/AUS/22/0153778

PATIENT

DRUGS (4)
  1. QUETIAPINE [Suspect]
     Active Substance: QUETIAPINE
     Indication: Product used for unknown indication
  2. LAMOTRIGINE [Suspect]
     Active Substance: LAMOTRIGINE
     Indication: Product used for unknown indication
  3. ZOPICLONE [Suspect]
     Active Substance: ZOPICLONE
     Indication: Product used for unknown indication
  4. SODIUM BICARBONATE [Suspect]
     Active Substance: SODIUM BICARBONATE
     Indication: Product used for unknown indication

REACTIONS (10)
  - Cardiotoxicity [Unknown]
  - Depressed level of consciousness [Unknown]
  - Distributive shock [Unknown]
  - Electrocardiogram QRS complex prolonged [Unknown]
  - Electrocardiogram ST segment depression [Unknown]
  - Hypokalaemia [Unknown]
  - Intentional overdose [Unknown]
  - Hypernatraemia [Unknown]
  - Toxicity to various agents [Unknown]
  - Somnolence [Unknown]
